FAERS Safety Report 12152799 (Version 1)
Quarter: 2016Q1

REPORT INFORMATION
  Report Type: Other
  Country: US (occurrence: US)
  Receive Date: 20160304
  Receipt Date: 20160304
  Transmission Date: 20160526
  Serious: Yes (Other)
  Sender: FDA-Public Use
  Company Number: US-GUTHY-RENKER LLC-1048731

PATIENT
  Age: 62 Year
  Sex: Female

DRUGS (4)
  1. MEDICATIONS FOR HYPERTENSION [Concomitant]
  2. MEANINGFUL BEAUTY WELLNESS [Suspect]
     Active Substance: MINERALS\VITAMINS
     Route: 048
     Dates: start: 20160118
  3. MEDICATION FOR ELEVATED CHOLESTEROL [Concomitant]
  4. METFORMIN [Concomitant]
     Active Substance: METFORMIN HYDROCHLORIDE

REACTIONS (4)
  - Lip pruritus [None]
  - Oral discomfort [None]
  - Reaction to drug excipients [None]
  - Oral discomfort [Recovered/Resolved]

NARRATIVE: CASE EVENT DATE: 20160118
